FAERS Safety Report 6231732-0 (Version None)
Quarter: 2009Q2

REPORT INFORMATION
  Report Type: 
  Country: None (occurrence: None)
  Receive Date: 20090616
  Receipt Date: 20090604
  Transmission Date: 20091009
  Serious: Yes (Hospitalization)
  Sender: FDA-Public Use
  Company Number: FR-PFIZER INC-2009223737

PATIENT
  Age: 77 Year

DRUGS (6)
  1. LYRICA [Suspect]
     Indication: BACK PAIN
     Dosage: 25 MG, 2X/DAY (MORNING AND EVENING)
     Dates: start: 20090525, end: 20090529
  2. ZANIDIP [Concomitant]
     Indication: HYPERTENSION
     Dosage: UNK
  3. OLMESARTAN MEDOXOMIL [Concomitant]
     Indication: HYPERTENSION
     Dosage: UNK
  4. FLUDEX [Concomitant]
     Indication: HYPERTENSION
     Dosage: UNK
  5. DIFFU K [Concomitant]
     Dosage: UNK
  6. TAMSULOSIN [Concomitant]
     Indication: PROSTATIC ADENOMA
     Dosage: UNK

REACTIONS (1)
  - EPILEPSY [None]
